FAERS Safety Report 23256524 (Version 1)
Quarter: 2023Q4

REPORT INFORMATION
  Report Type: Spontaneous
  Country: FR (occurrence: FR)
  Receive Date: 20231204
  Receipt Date: 20231204
  Transmission Date: 20240109
  Serious: Yes (Hospitalization, Other)
  Sender: FDA-Public Use
  Company Number: FR-AFSSAPS-CF20180257

PATIENT
  Age: 90 Year
  Sex: Female
  Weight: 60 kg

DRUGS (8)
  1. NEBIVOLOL [Interacting]
     Active Substance: NEBIVOLOL
     Indication: Hypertension
     Dosage: 5 MILLIGRAM, DAILY
     Route: 048
     Dates: end: 20180531
  2. ENALAPRIL [Interacting]
     Active Substance: ENALAPRIL
     Indication: Hypertension
     Dosage: 10 MILLIGRAM, DAILY
     Route: 048
     Dates: end: 20180531
  3. DIGOXIN [Interacting]
     Active Substance: DIGOXIN
     Indication: Atrial fibrillation
     Dosage: 5 EVERY WEEK (1 EXCEPT TUESDAY AND WEDNESDAY (5))
     Route: 048
     Dates: end: 20180531
  4. AMOXICILLIN [Concomitant]
     Active Substance: AMOXICILLIN
     Indication: Product used for unknown indication
     Dosage: 2 GRAM, DAILY
     Route: 048
     Dates: end: 20180531
  5. POTASSIUM CHLORIDE [Concomitant]
     Active Substance: POTASSIUM CHLORIDE
     Indication: Mineral supplementation
     Dosage: 1200 MILLIGRAM, DAILY
     Route: 048
     Dates: end: 20180531
  6. FUROSEMIDE [Concomitant]
     Active Substance: FUROSEMIDE
     Indication: Chronic kidney disease
     Dosage: 40 MILLIGRAM, UNK
     Route: 048
     Dates: end: 20180531
  7. FUROSEMIDE [Concomitant]
     Active Substance: FUROSEMIDE
     Dosage: 500 MILLIGRAM, DAILY
     Route: 048
     Dates: end: 20180531
  8. CLOTIAZEPAM [Concomitant]
     Active Substance: CLOTIAZEPAM
     Indication: Product used for unknown indication
     Dosage: 1 DOSAGE FORM, DAILY
     Route: 048
     Dates: end: 20180531

REACTIONS (3)
  - Acute kidney injury [Unknown]
  - Atrioventricular block complete [Recovered/Resolved]
  - Drug interaction [Unknown]

NARRATIVE: CASE EVENT DATE: 20180531
